APPROVED DRUG PRODUCT: TRACLEER
Active Ingredient: BOSENTAN
Strength: 32MG
Dosage Form/Route: TABLET, FOR SUSPENSION;ORAL
Application: N209279 | Product #001 | TE Code: AB
Applicant: ACTELION PHARMACEUTICALS US INC
Approved: Sep 5, 2017 | RLD: Yes | RS: Yes | Type: RX

PATENTS:
Patent 8309126 | Expires: May 15, 2026
Patent 7959945 | Expires: Dec 28, 2027